FAERS Safety Report 24233529 (Version 1)
Quarter: 2024Q3

REPORT INFORMATION
  Report Type: Spontaneous
  Country: CH (occurrence: CH)
  Receive Date: 20240821
  Receipt Date: 20240821
  Transmission Date: 20241016
  Serious: Yes (Hospitalization, Other)
  Sender: MERCK
  Company Number: None

PATIENT
  Age: 70 Year
  Sex: Male
  Weight: 70 kg

DRUGS (3)
  1. KEYTRUDA [Suspect]
     Active Substance: PEMBROLIZUMAB
     Indication: Lung adenocarcinoma stage IV
     Dosage: 200 MG EVERY 3 WEEKS
     Route: 040
     Dates: start: 202010, end: 20240603
  2. EPINEPHRINE [Suspect]
     Active Substance: EPINEPHRINE
     Indication: Product administration error
     Dosage: ADRENALIN SINTETICA 1MG/L
     Route: 040
     Dates: start: 20240702, end: 20240702
  3. CALQUENCE [Concomitant]
     Active Substance: ACALABRUTINIB
     Indication: Mantle cell lymphoma
     Dosage: 100 MILLIGRAM, Q12H
     Route: 048
     Dates: start: 202310

REACTIONS (4)
  - Product administration error [Recovered/Resolved]
  - Hypertensive crisis [Recovered/Resolved]
  - Stress cardiomyopathy [Recovered/Resolved]
  - Immune-mediated myocarditis [Unknown]

NARRATIVE: CASE EVENT DATE: 20240702
